FAERS Safety Report 16763254 (Version 1)
Quarter: 2019Q3

REPORT INFORMATION
  Report Type: Spontaneous
  Country: US (occurrence: US)
  Receive Date: 20190902
  Receipt Date: 20190902
  Transmission Date: 20191005
  Serious: No
  Sender: FDA-Public Use
  Company Number: PHEH2019US036052

PATIENT
  Sex: Female

DRUGS (2)
  1. FASLODEX [Suspect]
     Active Substance: FULVESTRANT
     Indication: PRODUCT USED FOR UNKNOWN INDICATION
     Route: 065
  2. PIQRAY [Suspect]
     Active Substance: ALPELISIB
     Indication: PRODUCT USED FOR UNKNOWN INDICATION
     Route: 065

REACTIONS (9)
  - Stomatitis [Unknown]
  - Cheilitis [Unknown]
  - Diarrhoea [Unknown]
  - Malaise [Unknown]
  - Pyrexia [Unknown]
  - Muscle spasms [Unknown]
  - Feeling abnormal [Unknown]
  - Headache [Unknown]
  - Fatigue [Unknown]
